FAERS Safety Report 13095083 (Version 2)
Quarter: 2018Q1

REPORT INFORMATION
  Report Type: Spontaneous
  Country: FI (occurrence: FI)
  Receive Date: 20170106
  Receipt Date: 20180306
  Transmission Date: 20180508
  Serious: Yes (Life-Threatening, Hospitalization, Other)
  Sender: FDA-Public Use
  Company Number: FI-BAXTER-2016BAX065884

PATIENT
  Age: 24 Year
  Sex: Female

DRUGS (14)
  1. SENDOXAN 1000 MG INJEKTIOKUIVA-AINE, LIUOSTA VARTEN [Suspect]
     Active Substance: CYCLOPHOSPHAMIDE
     Indication: NEUROBLASTOMA
  2. DACTINOMYCIN [Suspect]
     Active Substance: DACTINOMYCIN
     Indication: NEUROBLASTOMA
  3. GEMCITABINE [Suspect]
     Active Substance: GEMCITABINE\GEMCITABINE HYDROCHLORIDE
     Indication: LIPOSARCOMA METASTATIC
     Route: 042
     Dates: start: 20120817, end: 20120907
  4. ADRIAMYCIN [Suspect]
     Active Substance: DOXORUBICIN HYDROCHLORIDE
     Indication: FIBROSARCOMA
     Route: 042
     Dates: start: 19960905, end: 19970617
  5. DOCETAXEL. [Suspect]
     Active Substance: DOCETAXEL
     Indication: LIPOSARCOMA METASTATIC
     Route: 042
     Dates: start: 20120824, end: 20120824
  6. VINCRISTIN [Suspect]
     Active Substance: VINCRISTINE
     Indication: NEUROBLASTOMA
  7. DACTINOMYCIN [Suspect]
     Active Substance: DACTINOMYCIN
     Indication: FIBROSARCOMA
     Dosage: DAILY
     Route: 042
     Dates: start: 19961003, end: 19971009
  8. ADRIAMYCIN [Suspect]
     Active Substance: DOXORUBICIN HYDROCHLORIDE
     Indication: NEUROBLASTOMA
  9. YONDELIS [Suspect]
     Active Substance: TRABECTEDIN
     Indication: LIPOSARCOMA METASTATIC
     Dosage: FORM: POWDER FOR CONCENTRATE FOR SOLUTION FOR INFUSION
     Route: 042
     Dates: start: 20140813, end: 20161013
  10. CISPLATIN. [Suspect]
     Active Substance: CISPLATIN
     Indication: LIPOSARCOMA METASTATIC
     Route: 042
     Dates: start: 20121204, end: 20121205
  11. SENDOXAN 1000 MG INJEKTIOKUIVA-AINE, LIUOSTA VARTEN [Suspect]
     Active Substance: CYCLOPHOSPHAMIDE
     Indication: FIBROSARCOMA
     Route: 042
     Dates: start: 19960905, end: 19971008
  12. VINCRISTIN [Suspect]
     Active Substance: VINCRISTINE
     Indication: FIBROSARCOMA
     Dosage: DAILY
     Route: 042
     Dates: start: 19961003, end: 19971006
  13. HOLOXAN INJEKTIO/INFUUSIOKUIVA-AINE, LIUOSTA VARTEN [Suspect]
     Active Substance: IFOSFAMIDE
     Indication: LIPOSARCOMA METASTATIC
     Route: 042
     Dates: start: 20121227, end: 20140725
  14. LIPOSOMAL DOXORUBICIN [Suspect]
     Active Substance: DOXORUBICIN HYDROCHLORIDE
     Indication: LIPOSARCOMA METASTATIC
     Route: 042
     Dates: start: 20121227, end: 20140723

REACTIONS (2)
  - Liposarcoma metastatic [Unknown]
  - Acute myeloid leukaemia [Not Recovered/Not Resolved]

NARRATIVE: CASE EVENT DATE: 2012
